FAERS Safety Report 13899283 (Version 1)
Quarter: 2017Q3

REPORT INFORMATION
  Report Type: Spontaneous
  Country: US (occurrence: US)
  Receive Date: 20170823
  Receipt Date: 20170823
  Transmission Date: 20171127
  Serious: No
  Sender: FDA-Public Use
  Company Number: US-JAZZ-2017-US-008044

PATIENT
  Age: 50 Year
  Sex: Female

DRUGS (15)
  1. BENADRYL-D ALLERGY AND SINUS [Concomitant]
     Active Substance: DIPHENHYDRAMINE HYDROCHLORIDE\PHENYLEPHRINE HYDROCHLORIDE
  2. IMITREX [Concomitant]
     Active Substance: SUMATRIPTAN SUCCINATE
  3. KLONOPIN [Concomitant]
     Active Substance: CLONAZEPAM
  4. XYREM [Suspect]
     Active Substance: SODIUM OXYBATE
     Indication: NARCOLEPSY
     Dosage: 2.25G, BID
     Route: 048
     Dates: start: 201604, end: 201604
  5. XYREM [Suspect]
     Active Substance: SODIUM OXYBATE
     Indication: CATAPLEXY
     Dosage: DOSE ADJUSTMENTS
     Route: 048
     Dates: start: 201604, end: 201604
  6. LYRICA [Suspect]
     Active Substance: PREGABALIN
     Indication: PRODUCT USED FOR UNKNOWN INDICATION
     Dates: start: 20170607, end: 20170619
  7. MELATONIN [Concomitant]
     Active Substance: MELATONIN
  8. NORVASC [Concomitant]
     Active Substance: AMLODIPINE BESYLATE
  9. TRAZODONE [Concomitant]
     Active Substance: TRAZODONE HYDROCHLORIDE
  10. XYREM [Suspect]
     Active Substance: SODIUM OXYBATE
     Dosage: 4.5G, BID
     Route: 048
     Dates: start: 201604
  11. IBUPROFEN. [Concomitant]
     Active Substance: IBUPROFEN
  12. WELLBUTRIN [Concomitant]
     Active Substance: BUPROPION HYDROCHLORIDE
  13. ADDERALL [Concomitant]
     Active Substance: AMPHETAMINE ASPARTATE\AMPHETAMINE SULFATE\DEXTROAMPHETAMINE SACCHARATE\DEXTROAMPHETAMINE SULFATE
  14. NUVIGIL [Concomitant]
     Active Substance: ARMODAFINIL
  15. CITALOPRAM [Concomitant]
     Active Substance: CITALOPRAM HYDROBROMIDE

REACTIONS (6)
  - Nerve compression [Unknown]
  - Speech disorder [Recovering/Resolving]
  - Back injury [Unknown]
  - Confusional state [Recovering/Resolving]
  - Dyskinesia [Recovering/Resolving]
  - Neck pain [Unknown]

NARRATIVE: CASE EVENT DATE: 20170617
